FAERS Safety Report 10486129 (Version 1)
Quarter: 2014Q3

REPORT INFORMATION
  Report Type: Spontaneous
  Country: US (occurrence: None)
  Receive Date: 20140930
  Receipt Date: 20140930
  Transmission Date: 20150326
  Serious: Yes (Other)
  Sender: FDA-Public Use
  Company Number: None

PATIENT
  Age: 54 Year
  Sex: Female
  Weight: 49.9 kg

DRUGS (1)
  1. LEVOTHYROXINE SODIUM, 150 MCG [Suspect]
     Active Substance: LEVOTHYROXINE SODIUM
     Indication: THYROID DISORDER
     Dosage: 90 ONCE DAILY TAKEN BY MOUTH
     Route: 048
     Dates: start: 20111005, end: 20120107

REACTIONS (6)
  - Pruritus [None]
  - Condition aggravated [None]
  - Pancreatic disorder [None]
  - Vomiting [None]
  - Staphylococcal infection [None]
  - Fibromyalgia [None]
